FAERS Safety Report 23030025 (Version 1)
Quarter: 2023Q4

REPORT INFORMATION
  Report Type: Spontaneous
  Country: US (occurrence: US)
  Receive Date: 20231005
  Receipt Date: 20231005
  Transmission Date: 20240110
  Serious: No
  Sender: FDA-Public Use
  Company Number: US-AUROBINDO-AUR-APL-2022-051997

PATIENT
  Sex: Male

DRUGS (1)
  1. OMEPRAZOLE [Suspect]
     Active Substance: OMEPRAZOLE
     Indication: Gastrooesophageal reflux disease
     Dosage: 1 DOSAGE FORM,(TAKE 1 CAPSULE BY MOUTH DAILY, 30 MINUTES PRIOR TO BREAKFAST ON AN EMPTY S)
     Route: 065
     Dates: start: 20220831

REACTIONS (1)
  - Product taste abnormal [Unknown]
